FAERS Safety Report 7687371-8 (Version None)
Quarter: 2011Q3

REPORT INFORMATION
  Report Type: 
  Country: None (occurrence: None)
  Receive Date: 20110816
  Receipt Date: 20090720
  Transmission Date: 20111222
  Serious: Yes (Other)
  Sender: FDA-Public Use
  Company Number: US-BAYER-200827425NA

PATIENT
  Sex: Female
  Weight: 57 kg

DRUGS (20)
  1. OMNISCAN [Suspect]
     Indication: NUCLEAR MAGNETIC RESONANCE IMAGING
  2. LOPRESSOR [Concomitant]
  3. MINOXIDIL [Concomitant]
  4. METOPROLOL TARTRATE [Concomitant]
  5. ZOCOR [Concomitant]
  6. SIMAVASTATIN [Concomitant]
  7. QUININE SULFATE [Concomitant]
  8. EPOGEN [Concomitant]
  9. RENAGEL [Concomitant]
  10. MULTIHANCE [Suspect]
     Indication: NUCLEAR MAGNETIC RESONANCE IMAGING
  11. ACETYLSALICYLIC ACID SRT [Concomitant]
  12. FERROUS SULFATE TAB [Concomitant]
  13. PHOSLO [Concomitant]
  14. OPTIMARK [Suspect]
     Indication: NUCLEAR MAGNETIC RESONANCE IMAGING
  15. PROHANCE [Suspect]
     Indication: NUCLEAR MAGNETIC RESONANCE IMAGING
  16. CLONIDINE [Concomitant]
  17. ALBUTEROL SULFATE AUTOHALER [Concomitant]
  18. MAGNEVIST [Suspect]
     Indication: NUCLEAR MAGNETIC RESONANCE IMAGING
     Dosage: UNK UNK, ONCE
     Dates: start: 20070605, end: 20070605
  19. ACETAMINOPHEN AND HYDROCODONE BITARTRATE [Concomitant]
  20. PENTOXIFYLLINE [Concomitant]

REACTIONS (12)
  - EMOTIONAL DISTRESS [None]
  - NEPHROGENIC SYSTEMIC FIBROSIS [None]
  - JOINT STIFFNESS [None]
  - INJURY [None]
  - MOBILITY DECREASED [None]
  - SKIN DISCOLOURATION [None]
  - FIBROSIS [None]
  - SKIN INDURATION [None]
  - STRESS [None]
  - JOINT RANGE OF MOTION DECREASED [None]
  - PAIN [None]
  - SKIN HYPERTROPHY [None]
